FAERS Safety Report 16759059 (Version 1)
Quarter: 2019Q3

REPORT INFORMATION
  Report Type: Report from Study
  Country: BE (occurrence: BE)
  Receive Date: 20190830
  Receipt Date: 20190830
  Transmission Date: 20191005
  Serious: Yes (Other)
  Sender: FDA-Public Use
  Company Number: PHHY2019BE200853

PATIENT
  Age: 72 Year
  Sex: Female
  Weight: 44.5 kg

DRUGS (2)
  1. MEKINIST [Suspect]
     Active Substance: TRAMETINIB DIMETHYL SULFOXIDE
     Indication: SMALL CELL LUNG CANCER
     Dosage: 2 MG, QD
     Route: 048
     Dates: start: 20190711, end: 20190719
  2. DABRAFENIB [Suspect]
     Active Substance: DABRAFENIB
     Indication: SMALL CELL LUNG CANCER
     Dosage: 2 DF (150 MG), QD
     Route: 048
     Dates: start: 20190711, end: 20190719

REACTIONS (5)
  - Depressed level of consciousness [Recovered/Resolved]
  - Asthenia [Recovered/Resolved]
  - Fatigue [Recovered/Resolved]
  - Dizziness [Recovered/Resolved]
  - Drug intolerance [Unknown]

NARRATIVE: CASE EVENT DATE: 20190718
